FAERS Safety Report 9667966 (Version 1)
Quarter: 2013Q4

REPORT INFORMATION
  Report Type: Spontaneous
  Country: US (occurrence: US)
  Receive Date: 20131104
  Receipt Date: 20131104
  Transmission Date: 20140711
  Serious: Yes (Life-Threatening, Other)
  Sender: FDA-Public Use
  Company Number: US-GLAXOSMITHKLINE-A1047529A

PATIENT
  Sex: Female

DRUGS (3)
  1. PROMACTA [Suspect]
     Indication: IMMUNE THROMBOCYTOPENIC PURPURA
     Dosage: 50MG PER DAY
     Route: 048
  2. RITUXAN [Concomitant]
  3. STEROIDS [Concomitant]

REACTIONS (3)
  - Haemorrhage [Unknown]
  - Therapeutic response delayed [Recovering/Resolving]
  - Ecchymosis [Unknown]
